FAERS Safety Report 4698275-7 (Version None)
Quarter: 2005Q2

REPORT INFORMATION
  Report Type: 
  Country: None (occurrence: None)
  Receive Date: 20050621
  Receipt Date: 20050608
  Transmission Date: 20051028
  Serious: Yes (Hospitalization, Other)
  Sender: FDA-Public Use
  Company Number: HQWYE405109APR04

PATIENT
  Age: 45 Year
  Weight: 64.6 kg

DRUGS (36)
  1. RAPAMUNE [Suspect]
     Indication: PROPHYLAXIS AGAINST TRANSPLANT REJECTION
     Dosage: SEE IMAGE
     Route: 048
     Dates: start: 20040330, end: 20040331
  2. RAPAMUNE [Suspect]
     Indication: PROPHYLAXIS AGAINST TRANSPLANT REJECTION
     Dosage: SEE IMAGE
     Route: 048
     Dates: start: 20040403, end: 20040407
  3. RAPAMUNE [Suspect]
     Indication: PROPHYLAXIS AGAINST TRANSPLANT REJECTION
     Dosage: SEE IMAGE
     Route: 048
     Dates: start: 20040408, end: 20040411
  4. RAPAMUNE [Suspect]
     Indication: PROPHYLAXIS AGAINST TRANSPLANT REJECTION
     Dosage: SEE IMAGE
     Route: 048
     Dates: start: 20040412, end: 20040414
  5. RAPAMUNE [Suspect]
     Indication: PROPHYLAXIS AGAINST TRANSPLANT REJECTION
     Dosage: SEE IMAGE
     Route: 048
     Dates: start: 20040415, end: 20040421
  6. RAPAMUNE [Suspect]
     Indication: PROPHYLAXIS AGAINST TRANSPLANT REJECTION
     Dosage: SEE IMAGE
     Route: 048
     Dates: start: 20040422, end: 20040428
  7. RAPAMUNE [Suspect]
     Indication: PROPHYLAXIS AGAINST TRANSPLANT REJECTION
     Dosage: SEE IMAGE
     Route: 048
     Dates: start: 20040429, end: 20040505
  8. RAPAMUNE [Suspect]
     Indication: PROPHYLAXIS AGAINST TRANSPLANT REJECTION
     Dosage: SEE IMAGE
     Route: 048
     Dates: start: 20040506, end: 20040519
  9. RAPAMUNE [Suspect]
     Indication: PROPHYLAXIS AGAINST TRANSPLANT REJECTION
     Dosage: SEE IMAGE
     Route: 048
     Dates: start: 20040520, end: 20040607
  10. RAPAMUNE [Suspect]
     Indication: PROPHYLAXIS AGAINST TRANSPLANT REJECTION
     Dosage: SEE IMAGE
     Route: 048
     Dates: start: 20040608, end: 20040805
  11. RAPAMUNE [Suspect]
     Indication: PROPHYLAXIS AGAINST TRANSPLANT REJECTION
     Dosage: SEE IMAGE
     Route: 048
     Dates: start: 20040806, end: 20040915
  12. RAPAMUNE [Suspect]
     Indication: PROPHYLAXIS AGAINST TRANSPLANT REJECTION
     Dosage: SEE IMAGE
     Route: 048
     Dates: start: 20040918, end: 20041004
  13. RAPAMUNE [Suspect]
     Indication: PROPHYLAXIS AGAINST TRANSPLANT REJECTION
     Dosage: SEE IMAGE
     Route: 048
     Dates: start: 20041005, end: 20041007
  14. RAPAMUNE [Suspect]
     Indication: PROPHYLAXIS AGAINST TRANSPLANT REJECTION
     Dosage: SEE IMAGE
     Route: 048
     Dates: start: 20041008, end: 20041118
  15. RAPAMUNE [Suspect]
     Indication: PROPHYLAXIS AGAINST TRANSPLANT REJECTION
     Dosage: SEE IMAGE
     Route: 048
     Dates: start: 20041119, end: 20050104
  16. RAPAMUNE [Suspect]
     Indication: PROPHYLAXIS AGAINST TRANSPLANT REJECTION
     Dosage: SEE IMAGE
     Route: 048
     Dates: start: 20050105, end: 20050218
  17. RAPAMUNE [Suspect]
     Indication: PROPHYLAXIS AGAINST TRANSPLANT REJECTION
     Dosage: SEE IMAGE
     Route: 048
     Dates: start: 20050219, end: 20050404
  18. RAPAMUNE [Suspect]
     Indication: PROPHYLAXIS AGAINST TRANSPLANT REJECTION
     Dosage: SEE IMAGE
     Route: 048
     Dates: start: 20050405
  19. PREDNISONE [Concomitant]
  20. PENTAMIDINE (PENTAMIDINE) [Concomitant]
  21. ZESTRIL [Concomitant]
  22. TRANDATE [Concomitant]
  23. CARDIAZEM (DILTIAZEM HYDROCHLORIDE) [Concomitant]
  24. HYDRALAZINE HCL [Concomitant]
  25. COZAAR [Concomitant]
  26. CLONIDINE [Concomitant]
  27. EPOGEN [Concomitant]
  28. IRON (IRON) [Concomitant]
  29. RENAGEL (SEVELAMER) [Concomitant]
  30. UNSPECIFIED CALCIUM SUPPLEMENT (UNSPECIFIED CALCIUM SUPPLEMENT) [Concomitant]
  31. PROGRAF [Concomitant]
  32. SOLU-MEDROL [Concomitant]
  33. CARDENE [Concomitant]
  34. CEFEPIME (CEFEPIME) [Concomitant]
  35. LASIX [Concomitant]
  36. MANNITOL [Concomitant]

REACTIONS (10)
  - ACCIDENTAL OVERDOSE [None]
  - COMPLICATIONS OF TRANSPLANTED KIDNEY [None]
  - DRUG DISPENSING ERROR [None]
  - GRAFT DYSFUNCTION [None]
  - HAEMODIALYSIS [None]
  - HYPOTENSION [None]
  - IMMUNOSUPPRESSANT DRUG LEVEL INCREASED [None]
  - RENAL FUNCTION TEST ABNORMAL [None]
  - THROMBOCYTOPENIA [None]
  - WHITE BLOOD CELL COUNT INCREASED [None]
